FAERS Safety Report 24426946 (Version 1)
Quarter: 2024Q4

REPORT INFORMATION
  Report Type: Other
  Country: US (occurrence: US)
  Receive Date: 20241011
  Receipt Date: 20241011
  Transmission Date: 20250114
  Serious: Yes (Hospitalization)
  Sender: WOODWARD PHARMA SERVICES
  Company Number: US-WW-2024-06913

PATIENT
  Age: 42 Year
  Sex: Female

DRUGS (1)
  1. FLUCONAZOLE [Suspect]
     Active Substance: FLUCONAZOLE
     Indication: Pneumonia cryptococcal

REACTIONS (3)
  - Respiratory failure [Unknown]
  - Toxic encephalopathy [Unknown]
  - Symptom recurrence [Unknown]
